FAERS Safety Report 9927293 (Version 2)
Quarter: 2014Q1

REPORT INFORMATION
  Report Type: Spontaneous
  Country: US (occurrence: US)
  Receive Date: 20140226
  Receipt Date: 20140226
  Transmission Date: 20141002
  Serious: No
  Sender: FDA-Public Use
  Company Number: US-GILEAD-2012-0064049

PATIENT
  Age: 72 Year
  Sex: Male
  Weight: 63.49 kg

DRUGS (5)
  1. STRIBILD [Suspect]
     Indication: HIV INFECTION
     Dosage: UNK
     Route: 048
     Dates: start: 20120925
  2. ATENOLOL [Concomitant]
     Indication: BLOOD PRESSURE
     Dosage: 50 MG, UNK
     Route: 065
  3. ANDROGEL [Concomitant]
     Indication: BLOOD TESTOSTERONE DECREASED
     Dosage: 50 MG, UNK
     Route: 065
  4. TAMSULOSIN [Concomitant]
     Indication: PRODUCT USED FOR UNKNOWN INDICATION
     Dosage: 0.4 MG, UNK
     Route: 065
  5. ACYCLOVIR                          /00587301/ [Concomitant]
     Indication: PRODUCT USED FOR UNKNOWN INDICATION
     Dosage: 400 MG, UNK
     Route: 065

REACTIONS (1)
  - Dysgeusia [Unknown]
